FAERS Safety Report 18122553 (Version 1)
Quarter: 2020Q3

REPORT INFORMATION
  Report Type: Spontaneous
  Country: NL (occurrence: NL)
  Receive Date: 20200807
  Receipt Date: 20200807
  Transmission Date: 20201103
  Serious: Yes (Other)
  Sender: FDA-Public Use
  Company Number: NVSC2020NL213250

PATIENT
  Age: 60 Year
  Sex: Male

DRUGS (2)
  1. CIPROFLOXACIN. [Suspect]
     Active Substance: CIPROFLOXACIN
     Indication: NAIL DISCOLOURATION
     Dosage: 500 MG, BID (A DAY)
     Route: 065
  2. ACETIC ACID. [Concomitant]
     Active Substance: ACETIC ACID
     Indication: PRODUCT USED FOR UNKNOWN INDICATION
     Dosage: UNK, BID (DAILY)
     Route: 061

REACTIONS (4)
  - Pseudomonas infection [Unknown]
  - Off label use [Unknown]
  - Nail discolouration [Unknown]
  - Product use in unapproved indication [Unknown]
